FAERS Safety Report 4704977-6 (Version None)
Quarter: 2005Q3

REPORT INFORMATION
  Report Type: 
  Country: None (occurrence: None)
  Receive Date: 20050701
  Receipt Date: 20050624
  Transmission Date: 20060218
  Serious: Yes (Life-Threatening, Hospitalization)
  Sender: FDA-Public Use
  Company Number: JP-SP-2005-01232

PATIENT
  Age: 53 Year
  Sex: Male

DRUGS (5)
  1. IMMUCYST [Suspect]
     Indication: BLADDER CANCER STAGE III
     Route: 043
     Dates: start: 20040108, end: 20040304
  2. LEVOFLOXACIN [Concomitant]
     Dates: start: 20040122
  3. ETODOLAC [Concomitant]
     Dates: start: 20030916
  4. REBAMIPIDE [Concomitant]
     Dates: start: 20031020
  5. DICLOFENAC SODIUM [Concomitant]
     Route: 054
     Dates: start: 20031001

REACTIONS (2)
  - BOVINE TUBERCULOSIS [None]
  - URINARY TRACT INFECTION [None]
